FAERS Safety Report 10190206 (Version 2)
Quarter: 2014Q2

REPORT INFORMATION
  Report Type: Spontaneous
  Country: FR (occurrence: FR)
  Receive Date: 20140522
  Receipt Date: 20140529
  Transmission Date: 20141212
  Serious: Yes (Death, Life-Threatening)
  Sender: FDA-Public Use
  Company Number: FR-ASTRAZENECA-2014SE35022

PATIENT
  Age: 25201 Day
  Sex: Female

DRUGS (17)
  1. INEXIUM [Suspect]
     Route: 048
     Dates: start: 20131215, end: 20131216
  2. MORPHINE [Suspect]
     Indication: POSTOPERATIVE ANALGESIA
     Route: 042
     Dates: start: 20131216, end: 20131216
  3. MORPHINE [Suspect]
     Indication: POSTOPERATIVE ANALGESIA
     Route: 037
     Dates: start: 20131216, end: 20131216
  4. PROPOFOL FRESENIUS [Suspect]
     Indication: INDUCTION OF ANAESTHESIA
     Route: 042
     Dates: start: 20131216, end: 20131216
  5. ULTIVA [Suspect]
     Indication: INDUCTION OF ANAESTHESIA
     Route: 040
     Dates: start: 20131216, end: 20131216
  6. LIDOCAINE AGUETTANT [Suspect]
     Indication: PERIOPERATIVE ANALGESIA
     Dosage: 70 MG BOLUS AND THEN 100 MG/HOUR (TOTAL 270 MG)
     Route: 040
     Dates: start: 20131216, end: 20131216
  7. PARACETAMOL MACOPHARMA [Suspect]
     Indication: POSTOPERATIVE ANALGESIA
     Route: 042
     Dates: start: 20131216, end: 20131216
  8. DETENSIEL [Suspect]
     Indication: HYPERTENSION
     Route: 048
     Dates: end: 20131216
  9. LYRICA [Suspect]
     Route: 048
     Dates: start: 20131215, end: 20131216
  10. ATRACURIUM HOSPIRA [Suspect]
     Indication: NEUROMUSCULAR BLOCKING THERAPY
     Dosage: 50 MG AND 10 MG BOLUS
     Route: 042
     Dates: start: 20131216, end: 20131216
  11. KETAMINE PANPHARMA [Suspect]
     Indication: PERIOPERATIVE ANALGESIA
     Dosage: 42 MG BOLUS AND THEN 10 MG/HOUR
     Route: 040
     Dates: start: 20131216, end: 20131216
  12. CEFAZOLINE MYLAN [Suspect]
     Indication: ANTIBIOTIC PROPHYLAXIS
     Dosage: 2 G AND THEN 1 G
     Route: 042
     Dates: start: 20131216, end: 20131216
  13. DEXAMETHASONE MYLAN [Suspect]
     Indication: PROCEDURAL NAUSEA
     Route: 042
     Dates: start: 20131216, end: 20131216
  14. KETOPROFENE MEDAC [Suspect]
     Indication: POSTOPERATIVE ANALGESIA
     Route: 042
     Dates: start: 20131216, end: 20131216
  15. ACUPAN [Suspect]
     Indication: POSTOPERATIVE ANALGESIA
     Route: 042
     Dates: start: 20131216, end: 20131216
  16. ATARAX [Concomitant]
  17. FOSAVANCE [Concomitant]

REACTIONS (4)
  - Cardiac arrest [Fatal]
  - Pulseless electrical activity [Recovered/Resolved]
  - Metabolic acidosis [Unknown]
  - Lactic acidosis [Unknown]
